FAERS Safety Report 4313483-2 (Version None)
Quarter: 2004Q1

REPORT INFORMATION
  Report Type: 
  Country: None (occurrence: None)
  Receive Date: 20040308
  Receipt Date: 20040202
  Transmission Date: 20041129
  Serious: Yes (Other)
  Sender: FDA-Public Use
  Company Number: JP-ROCHE-358378

PATIENT
  Age: 13 Year
  Sex: Male

DRUGS (11)
  1. TAMIFLU [Suspect]
     Route: 048
     Dates: start: 20040121, end: 20040126
  2. ALLERGIN [Concomitant]
     Route: 048
     Dates: start: 20040121, end: 20040124
  3. UNIDENTIFIED [Concomitant]
     Dosage: DRUG REPORTED AS NEOUMOR (RIQUORICE EXTRACT - MAGNESIUM ALUMINOMETAS)
     Route: 048
     Dates: start: 20040121, end: 20040124
  4. ASVERIN [Concomitant]
     Route: 048
     Dates: start: 20040121, end: 20040124
  5. LEFTOSE [Concomitant]
     Route: 048
     Dates: start: 20040121, end: 20040124
  6. BROCIN [Concomitant]
     Indication: COUGH
     Dosage: FORM REPORTED AS DRY SYRUP
     Route: 048
     Dates: start: 20040121, end: 20040124
  7. APRICOT KERNEL WATER [Concomitant]
     Indication: COUGH
     Route: 048
     Dates: start: 20040121, end: 20040124
  8. SIMPLE SYRUP [Concomitant]
     Route: 048
     Dates: start: 20040121, end: 20040124
  9. SP TROCHE [Concomitant]
     Dosage: FORM REPORTED AS TROCHE.
     Route: 048
     Dates: start: 20040121, end: 20040124
  10. ISODINE [Concomitant]
     Dosage: GARGLE. TAKEN SOMETIMES PER DAY.
     Dates: start: 20040121, end: 20040124
  11. ACETAMINOPHEN [Concomitant]
     Indication: PYREXIA
     Route: 048
     Dates: start: 20040121

REACTIONS (3)
  - COUGH [None]
  - DELIRIUM [None]
  - PHARYNGOLARYNGEAL PAIN [None]
